FAERS Safety Report 9918742 (Version 2)
Quarter: 2014Q2

REPORT INFORMATION
  Report Type: Spontaneous
  Country: IT (occurrence: IT)
  Receive Date: 20140224
  Receipt Date: 20140422
  Transmission Date: 20141212
  Serious: Yes (Hospitalization)
  Sender: FDA-Public Use
  Company Number: IT-ACCORD-022006

PATIENT
  Age: 62 Year
  Sex: Female

DRUGS (4)
  1. VALPROIC ACID [Concomitant]
  2. BIPERIDEN [Suspect]
     Indication: PRODUCT USED FOR UNKNOWN INDICATION
     Dates: start: 20130101, end: 20131229
  3. FLURAZEPAM [Suspect]
     Indication: PRODUCT USED FOR UNKNOWN INDICATION
     Dates: start: 20130101, end: 20131226
  4. QUETIAPINE [Suspect]
     Indication: PRODUCT USED FOR UNKNOWN INDICATION
     Dates: start: 20130101, end: 20131229

REACTIONS (4)
  - Asthenia [Recovering/Resolving]
  - Confusional state [Recovering/Resolving]
  - Sopor [Recovering/Resolving]
  - Psychomotor skills impaired [Recovering/Resolving]
